FAERS Safety Report 5868475-9 (Version None)
Quarter: 2008Q3

REPORT INFORMATION
  Report Type: 
  Country: None (occurrence: None)
  Receive Date: 20080903
  Receipt Date: 20080829
  Transmission Date: 20090109
  Serious: Yes (Other)
  Sender: FDA-Public Use
  Company Number: US-RB-003756-08

PATIENT
  Age: 32 Year
  Sex: Male

DRUGS (3)
  1. SUBOXONE [Suspect]
     Route: 060
     Dates: start: 20080801
  2. TEGRETOL [Concomitant]
     Dosage: PATIENT STATES HE TAKES 2 DAILY
     Route: 048
  3. KLONOPIN [Concomitant]
     Indication: DRUG USE FOR UNKNOWN INDICATION
     Dosage: PATIENT STATES HE TAKES 1 DAILY
     Route: 048

REACTIONS (2)
  - HEADACHE [None]
  - PETIT MAL EPILEPSY [None]
